FAERS Safety Report 8030192-7 (Version None)
Quarter: 2012Q1

REPORT INFORMATION
  Report Type: 
  Country: None (occurrence: None)
  Receive Date: 20120105
  Receipt Date: 20111221
  Transmission Date: 20120608
  Serious: Yes (Other)
  Sender: FDA-Public Use
  Company Number: TPA2011A06110

PATIENT
  Age: 65 Year
  Sex: Male
  Weight: 77.5651 kg

DRUGS (6)
  1. ACTOS [Suspect]
     Indication: TYPE 2 DIABETES MELLITUS
     Dosage: 15 MG, 1 IN 1 D, PER ORAL
     Route: 048
     Dates: start: 20110301, end: 20110818
  2. SIMVASTATIN [Concomitant]
  3. FENOFIBRATE [Concomitant]
  4. NIASPAN [Concomitant]
  5. LISINOPRIL [Concomitant]
  6. METFORMIN HCL [Concomitant]

REACTIONS (2)
  - CYSTITIS NONINFECTIVE [None]
  - URETHRAL PAPILLOMA [None]
